FAERS Safety Report 4947820-2 (Version None)
Quarter: 2006Q1

REPORT INFORMATION
  Report Type: 
  Country: None (occurrence: None)
  Receive Date: 20060317
  Receipt Date: 20060317
  Transmission Date: 20060701
  Serious: Yes (Hospitalization)
  Sender: FDA-Public Use
  Company Number: None

PATIENT
  Sex: Male

DRUGS (19)
  1. LYRICA [Suspect]
     Indication: NEUROPATHY
     Dosage: 50 MG TID PO
     Route: 048
     Dates: start: 20051220, end: 20051228
  2. CYPROHEPTADINE HCL [Concomitant]
  3. VALIUM [Concomitant]
  4. ROBAXIN [Concomitant]
  5. FESO4 [Concomitant]
  6. ASCORBIC ACID [Concomitant]
  7. LABETALOL HCL [Concomitant]
  8. LASIX [Concomitant]
  9. LEXAPRO [Concomitant]
  10. ACIPHEX [Concomitant]
  11. ASPIRIN [Concomitant]
  12. LANTUS [Concomitant]
  13. HYTRIN [Concomitant]
  14. SYBNTHROID [Concomitant]
  15. PLAVIX [Concomitant]
  16. NITROGLYCERIN [Concomitant]
  17. CLONIDINE [Concomitant]
  18. LIPITOR [Concomitant]
  19. ADALAT CC [Concomitant]

REACTIONS (3)
  - COGNITIVE DISORDER [None]
  - DELIRIUM [None]
  - HALLUCINATION [None]
